FAERS Safety Report 7777417-0 (Version None)
Quarter: 2011Q3

REPORT INFORMATION
  Report Type: 
  Country: None (occurrence: None)
  Receive Date: 20110922
  Receipt Date: 20110909
  Transmission Date: 20111222
  Serious: Yes (Other)
  Sender: FDA-Public Use
  Company Number: LTI2011A00253

PATIENT
  Age: 86 Year
  Sex: Male

DRUGS (2)
  1. DOANIL (GLIBENCLAMIDE) [Concomitant]
  2. ACTOS [Suspect]
     Indication: TYPE 2 DIABETES MELLITUS
     Dosage: 30 MG (30 MG, 1 IN 1 D) ORAL
     Route: 048
     Dates: start: 20050101, end: 20060101

REACTIONS (1)
  - BLADDER TRANSITIONAL CELL CARCINOMA [None]
